FAERS Safety Report 6301313-9 (Version None)
Quarter: 2009Q3

REPORT INFORMATION
  Report Type: 
  Country: None (occurrence: None)
  Receive Date: 20090805
  Receipt Date: 20090805
  Transmission Date: 20100115
  Serious: No
  Sender: FDA-Public Use
  Company Number: None

PATIENT
  Sex: Female

DRUGS (1)
  1. OMNIPAQUE 350 [Suspect]
     Indication: NEPHRECTOMY
     Dosage: 100 ML, 2.3 ML/SEC, IV BOLUS
     Route: 040
     Dates: start: 20090629, end: 20090630

REACTIONS (3)
  - NAUSEA [None]
  - PRODUCT QUALITY ISSUE [None]
  - VOMITING [None]
